FAERS Safety Report 8789318 (Version 1)
Quarter: 2012Q4

REPORT INFORMATION
  Report Type: Spontaneous
  Country: US (occurrence: None)
  Receive Date: 20120905
  Receipt Date: 20120905
  Transmission Date: 20130627
  Serious: Yes (Death)
  Sender: FDA-Public Use
  Company Number: DKLU1084104

PATIENT
  Age: 35 Month
  Sex: Male

DRUGS (1)
  1. SABRIL [Suspect]
     Indication: EPILEPSY
     Dosage: 500 mg milligram(s), 2 in 1 D, Oral
     Route: 048
     Dates: start: 20120517, end: 20120621

REACTIONS (1)
  - Death [None]
